FAERS Safety Report 7304248-8 (Version None)
Quarter: 2011Q1

REPORT INFORMATION
  Report Type: 
  Country: None (occurrence: None)
  Receive Date: 20110221
  Receipt Date: 20110207
  Transmission Date: 20110831
  Serious: Yes (Hospitalization)
  Sender: FDA-Public Use
  Company Number: US-BAYER-201035881NA

PATIENT
  Sex: Female
  Weight: 117.1 kg

DRUGS (4)
  1. PREDNISONE [Concomitant]
     Dosage: UNK UNK, OW
  2. YASMIN [Suspect]
     Indication: MENSTRUATION IRREGULAR
     Dates: start: 20040301, end: 20040901
  3. VENTOLIN [Concomitant]
     Dosage: UNK
  4. ADVAIR [Concomitant]
     Dosage: UNK

REACTIONS (8)
  - NAUSEA [None]
  - DYSPNOEA [None]
  - PALPITATIONS [None]
  - COUGH [None]
  - HYPOAESTHESIA [None]
  - PULMONARY EMBOLISM [None]
  - DIZZINESS [None]
  - CHEST DISCOMFORT [None]
